FAERS Safety Report 6270798-9 (Version None)
Quarter: 2009Q3

REPORT INFORMATION
  Report Type: 
  Country: None (occurrence: None)
  Receive Date: 20090716
  Receipt Date: 20090709
  Transmission Date: 20100115
  Serious: Yes (Other)
  Sender: FDA-Public Use
  Company Number: US-ASTRAZENECA-2009UW19336

PATIENT
  Age: 1070 Month
  Sex: Female
  Weight: 68 kg

DRUGS (5)
  1. METOPROLOL SUCCINATE [Suspect]
     Dosage: 25-100 MG DAILY
     Route: 048
     Dates: start: 20060101
  2. METOPROLOL SUCCINATE [Suspect]
     Route: 048
     Dates: start: 20090703
  3. FELODIPINE [Concomitant]
  4. TEKTURNA [Concomitant]
  5. HYDROCHLOROTHIAZIDE [Concomitant]

REACTIONS (3)
  - FALL [None]
  - HEART RATE IRREGULAR [None]
  - SYNCOPE [None]
